FAERS Safety Report 11436560 (Version 3)
Quarter: 2015Q4

REPORT INFORMATION
  Report Type: Spontaneous
  Country: US (occurrence: US)
  Receive Date: 20150831
  Receipt Date: 20151104
  Transmission Date: 20160304
  Serious: Yes (Other)
  Sender: FDA-Public Use
  Company Number: US-GILEAD-2015-0169595

PATIENT
  Age: 60 Year
  Sex: Male
  Weight: 78.5 kg

DRUGS (3)
  1. LETAIRIS [Suspect]
     Active Substance: AMBRISENTAN
     Indication: PRODUCT USED FOR UNKNOWN INDICATION
     Route: 065
  2. ADCIRCA [Concomitant]
     Active Substance: TADALAFIL
  3. TYVASO [Suspect]
     Active Substance: TREPROSTINIL
     Indication: PULMONARY HYPERTENSION
     Dosage: 18-54 UG, 3-9 BREATHS, QID
     Route: 055
     Dates: start: 20150529

REACTIONS (5)
  - Hypotension [Unknown]
  - Fatigue [Unknown]
  - Cough [Unknown]
  - Gait disturbance [Recovering/Resolving]
  - Dizziness [Unknown]
